FAERS Safety Report 17747265 (Version 1)
Quarter: 2020Q2

REPORT INFORMATION
  Report Type: Spontaneous
  Country: TW (occurrence: TW)
  Receive Date: 20200505
  Receipt Date: 20200505
  Transmission Date: 20200714
  Serious: Yes (Other)
  Sender: FDA-Public Use
  Company Number: TW-HQ SPECIALTY-TW-2020INT000048

PATIENT

DRUGS (2)
  1. CISPLATIN. [Suspect]
     Active Substance: CISPLATIN
     Indication: HEAD AND NECK CANCER
     Dosage: 60 TO 75 MG/M2, 3 WK INTERVAL BETWEEN EACH COURSE OF IC
     Route: 042
  2. DOCETAXEL. [Suspect]
     Active Substance: DOCETAXEL
     Indication: HEAD AND NECK CANCER
     Dosage: 60 TO 75 MG/M2, 3 WK INTERVAL BETWEEN EACH COURSE OF IC
     Route: 042

REACTIONS (1)
  - Mucosal inflammation [Unknown]
